FAERS Safety Report 13155984 (Version 1)
Quarter: 2017Q1

REPORT INFORMATION
  Report Type: Spontaneous
  Country: US (occurrence: US)
  Receive Date: 20170126
  Receipt Date: 20170126
  Transmission Date: 20170428
  Serious: No
  Sender: FDA-Public Use
  Company Number: US-ROCHE-745412

PATIENT
  Sex: Male
  Weight: 95.3 kg

DRUGS (2)
  1. OXYCODONE [Concomitant]
     Active Substance: OXYCODONE
     Indication: PAIN
  2. DIAZEPAM. [Suspect]
     Active Substance: DIAZEPAM
     Indication: TINNITUS
     Dosage: DURATION: ON AND OFF FOR YEAR. OTHER INDICATION: PAIN
     Route: 048

REACTIONS (3)
  - Weight increased [Unknown]
  - Pain [Unknown]
  - Drug screen positive [Unknown]
